FAERS Safety Report 13246444 (Version 1)
Quarter: 2017Q1

REPORT INFORMATION
  Report Type: Spontaneous
  Country: US (occurrence: US)
  Receive Date: 20170217
  Receipt Date: 20170217
  Transmission Date: 20170428
  Serious: Yes (Other)
  Sender: FDA-Public Use
  Company Number: US-TEVA-727829ACC

PATIENT
  Sex: Female
  Weight: 66.21 kg

DRUGS (3)
  1. GUAIFENESIN W/ DEXTROMETHORPHAN [Suspect]
     Active Substance: DEXTROMETHORPHAN\GUAIFENESIN
     Indication: COUGH
     Dosage: 1 DOSAGE FORMS DAILY; 1 DOSAGE FORM; ONE TABLET CRUSHED
     Route: 048
     Dates: start: 20161212, end: 20161213
  2. GUAIFENESIN W/ DEXTROMETHORPHAN [Suspect]
     Active Substance: DEXTROMETHORPHAN\GUAIFENESIN
     Indication: RESPIRATORY TRACT CONGESTION
     Dosage: ONE TABLET CUT IN TWO HALVES, SINGLE
     Route: 048
     Dates: start: 20161211, end: 20161211
  3. SIMVASTATIN. [Concomitant]
     Active Substance: SIMVASTATIN
     Dates: start: 2011

REACTIONS (4)
  - Fatigue [Not Recovered/Not Resolved]
  - Asthenia [Not Recovered/Not Resolved]
  - Wrong technique in product usage process [Unknown]
  - Oesophageal injury [Unknown]
